FAERS Safety Report 18362137 (Version 1)
Quarter: 2020Q4

REPORT INFORMATION
  Report Type: Spontaneous
  Country: UY (occurrence: UY)
  Receive Date: 20201009
  Receipt Date: 20201009
  Transmission Date: 20210114
  Serious: Yes (Hospitalization, Disabling)
  Sender: FDA-Public Use
  Company Number: UY-ROCHE-2689477

PATIENT
  Age: 51 Year
  Sex: Female

DRUGS (2)
  1. ATEZOLIZUMAB. [Suspect]
     Active Substance: ATEZOLIZUMAB
     Indication: LUNG ADENOCARCINOMA
     Route: 065
  2. DOCETAXEL. [Concomitant]
     Active Substance: DOCETAXEL

REACTIONS (6)
  - Rash papular [Unknown]
  - Rash morbilliform [Unknown]
  - Toxicity to various agents [Unknown]
  - Oedema peripheral [Unknown]
  - Rash [Unknown]
  - Extravasation [Unknown]
